FAERS Safety Report 5028485-0 (Version None)
Quarter: 2006Q2

REPORT INFORMATION
  Report Type: 
  Country: None (occurrence: None)
  Receive Date: 20060617
  Receipt Date: 20060613
  Transmission Date: 20061013
  Serious: Yes (Other)
  Sender: FDA-Public Use
  Company Number: AU-GLAXOSMITHKLINE-B0427663A

PATIENT
  Sex: Male

DRUGS (2)
  1. SERETIDE [Suspect]
  2. PULMICORT [Concomitant]

REACTIONS (3)
  - BURNING SENSATION [None]
  - CHOKING [None]
  - ORAL DISCOMFORT [None]
